FAERS Safety Report 9767216 (Version 2)
Quarter: 2014Q4

REPORT INFORMATION
  Report Type: Spontaneous
  Country: US (occurrence: US)
  Receive Date: 20131217
  Receipt Date: 20141217
  Transmission Date: 20150529
  Serious: No
  Sender: FDA-Public Use
  Company Number: US-GLAXOSMITHKLINE-A1043979A

PATIENT
  Age: 79 Year
  Sex: Male

DRUGS (2)
  1. VOTRIENT [Suspect]
     Active Substance: PAZOPANIB HYDROCHLORIDE
     Indication: RENAL CANCER
     Dates: start: 20130506
  2. VOTRIENT [Suspect]
     Active Substance: PAZOPANIB HYDROCHLORIDE
     Indication: MALIGNANT URINARY TRACT NEOPLASM
     Dosage: 800 MG DAILY (200 MG TABLETS)
     Route: 048
     Dates: start: 20130506

REACTIONS (6)
  - Nausea [Not Recovered/Not Resolved]
  - Skin discolouration [Not Recovered/Not Resolved]
  - Hair colour changes [Not Recovered/Not Resolved]
  - Skin lesion [Not Recovered/Not Resolved]
  - Diarrhoea [Not Recovered/Not Resolved]
  - Skin disorder [Not Recovered/Not Resolved]

NARRATIVE: CASE EVENT DATE: 20130506
